FAERS Safety Report 20322091 (Version 1)
Quarter: 2022Q1

REPORT INFORMATION
  Report Type: Spontaneous
  Country: TW (occurrence: TW)
  Receive Date: 20220111
  Receipt Date: 20220111
  Transmission Date: 20220423
  Serious: Yes (Hospitalization, Other)
  Sender: FDA-Public Use
  Company Number: TW-PFIZER INC-202101881675

PATIENT
  Age: 62 Year
  Sex: Male

DRUGS (6)
  1. XELJANZ [Suspect]
     Active Substance: TOFACITINIB CITRATE
     Indication: Rheumatoid arthritis
     Dosage: 5 MG, BID
     Route: 048
     Dates: start: 20200813, end: 20211230
  2. MELOXICAM [Concomitant]
     Active Substance: MELOXICAM
  3. PREDNISOLONE [Concomitant]
     Active Substance: PREDNISOLONE
  4. FOLIC ACID [Concomitant]
     Active Substance: FOLIC ACID
  5. HYDROXYCHLOROQUINE SULFATE [Concomitant]
     Active Substance: HYDROXYCHLOROQUINE SULFATE
  6. METHOTREXATE [Concomitant]
     Active Substance: METHOTREXATE

REACTIONS (3)
  - Nonkeratinising carcinoma of nasopharynx [Not Recovered/Not Resolved]
  - Nasopharyngeal cancer [Not Recovered/Not Resolved]
  - Haemoptysis [Not Recovered/Not Resolved]
